FAERS Safety Report 20438463 (Version 1)
Quarter: 2022Q1

REPORT INFORMATION
  Report Type: Other
  Country: BR (occurrence: None)
  Receive Date: 20220207
  Receipt Date: 20220207
  Transmission Date: 20220424
  Serious: No
  Sender: FDA-Public Use
  Company Number: BR-ROCHE-3014333

PATIENT
  Sex: Male
  Weight: 90 kg

DRUGS (1)
  1. OCREVUS [Suspect]
     Active Substance: OCRELIZUMAB
     Indication: Multiple sclerosis
     Route: 065

REACTIONS (1)
  - COVID-19 [Unknown]
